FAERS Safety Report 13600511 (Version 2)
Quarter: 2018Q2

REPORT INFORMATION
  Report Type: Report from Study
  Country: None (occurrence: AU)
  Receive Date: 20170601
  Receipt Date: 20180626
  Transmission Date: 20180711
  Serious: Yes (Hospitalization)
  Sender: FDA-Public Use
  Company Number: AU-ABBVIE-17K-008-1993872-00

PATIENT
  Age: 30 Year
  Sex: Female

DRUGS (2)
  1. HUMIRA [Suspect]
     Active Substance: ADALIMUMAB
     Indication: ANKYLOSING SPONDYLITIS
     Route: 058
     Dates: end: 201704
  2. HUMIRA [Suspect]
     Active Substance: ADALIMUMAB
     Route: 058
     Dates: start: 201708

REACTIONS (3)
  - Wound infection [Not Recovered/Not Resolved]
  - Stress at work [Not Recovered/Not Resolved]
  - Accident [Not Recovered/Not Resolved]

NARRATIVE: CASE EVENT DATE: 201704
